FAERS Safety Report 7762882-5 (Version None)
Quarter: 2011Q3

REPORT INFORMATION
  Report Type: 
  Country: None (occurrence: None)
  Receive Date: 20110920
  Receipt Date: 20110909
  Transmission Date: 20111222
  Serious: Yes (Hospitalization)
  Sender: FDA-Public Use
  Company Number: US-BAYER-2011-084815

PATIENT
  Age: 67 Year
  Sex: Male
  Weight: 85 kg

DRUGS (2)
  1. SARGRAMOSTIM [Suspect]
     Indication: MALIGNANT MELANOMA
     Dosage: 250 MCG/DAY, C6D14 LAST INVESTIGATIONAL AGENT
     Route: 058
     Dates: start: 20110425, end: 20110822
  2. MDX-010 [Suspect]
     Indication: MALIGNANT MELANOMA
     Dosage: 10 MG/KG, C4D1 COMPLETED
     Route: 042
     Dates: start: 20110425, end: 20110427

REACTIONS (1)
  - SICK SINUS SYNDROME [None]
